FAERS Safety Report 25397115 (Version 1)
Quarter: 2025Q2

REPORT INFORMATION
  Report Type: Spontaneous
  Country: US (occurrence: US)
  Receive Date: 20250604
  Receipt Date: 20250604
  Transmission Date: 20250717
  Serious: No
  Sender: REGENERON
  Company Number: US-REGENERON PHARMACEUTICALS, INC.-2024-111213

PATIENT
  Sex: Female

DRUGS (1)
  1. EYLEA HD [Suspect]
     Active Substance: AFLIBERCEPT
     Indication: Neovascular age-related macular degeneration
     Dosage: 8 MG, Q8W, FORMULATION: EYLEA HD
     Dates: start: 2024

REACTIONS (2)
  - Vitamin D increased [Unknown]
  - Nausea [Unknown]

NARRATIVE: CASE EVENT DATE: 20240101
